FAERS Safety Report 9675659 (Version 2)
Quarter: 2014Q1

REPORT INFORMATION
  Report Type: Spontaneous
  Country: US (occurrence: None)
  Receive Date: 20131105
  Receipt Date: 20140325
  Transmission Date: 20141002
  Serious: Yes (Other)
  Sender: FDA-Public Use
  Company Number: 2013-US-002561

PATIENT
  Age: 58 Year
  Sex: Female

DRUGS (2)
  1. XYREM [Suspect]
     Indication: INSOMNIA
     Route: 048
     Dates: start: 20131021, end: 20131022
  2. IBUPROFEN (IBUPROFEN) [Concomitant]

REACTIONS (9)
  - Contusion [None]
  - Incontinence [None]
  - Fall [None]
  - Disorientation [None]
  - Confusional state [None]
  - Loss of consciousness [None]
  - Off label use [None]
  - Convulsion [None]
  - Laceration [None]
